FAERS Safety Report 8224143-X (Version None)
Quarter: 2012Q1

REPORT INFORMATION
  Report Type: 
  Country: None (occurrence: None)
  Receive Date: 20120321
  Receipt Date: 20120316
  Transmission Date: 20120608
  Serious: No
  Sender: FDA-Public Use
  Company Number: US-PFIZER INC-2012027572

PATIENT
  Sex: Female

DRUGS (2)
  1. LIPITOR [Suspect]
     Dosage: UNK
  2. NEURONTIN [Suspect]
     Dosage: UNK

REACTIONS (3)
  - HERPES ZOSTER [None]
  - PAIN [None]
  - FEAR [None]
